FAERS Safety Report 16074308 (Version 3)
Quarter: 2019Q2

REPORT INFORMATION
  Report Type: Spontaneous
  Country: US (occurrence: US)
  Receive Date: 20190314
  Receipt Date: 20190611
  Transmission Date: 20190711
  Serious: No
  Sender: FDA-Public Use
  Company Number: US-TEVA-2019-US-1015687

PATIENT
  Sex: Female

DRUGS (1)
  1. PROGESTERONE CAPSULES [Suspect]
     Active Substance: PROGESTERONE
     Dosage: 100 MILLIGRAM DAILY;
     Route: 065

REACTIONS (2)
  - Pruritus [Unknown]
  - Product substitution issue [Unknown]
